FAERS Safety Report 8175726-7 (Version None)
Quarter: 2012Q1

REPORT INFORMATION
  Report Type: 
  Country: None (occurrence: None)
  Receive Date: 20120301
  Receipt Date: 20120207
  Transmission Date: 20120608
  Serious: Yes (Other)
  Sender: FDA-Public Use
  Company Number: ES-AMGEN-ESPSP2012007347

PATIENT
  Age: 21 Year
  Sex: Male

DRUGS (13)
  1. VITAMIN D [Concomitant]
     Dosage: UNK
  2. TRAMADOL HCL [Concomitant]
     Dosage: 50 MG, WEEKLY
  3. HUMIRA [Suspect]
     Dosage: 40 MG, EVERY 15 DAYS
  4. ACETAMINOPHEN [Concomitant]
     Dosage: UNK
  5. ACTONEL [Concomitant]
     Dosage: 35 MG, WEEKLY
  6. ENBREL [Suspect]
     Indication: RHEUMATOID ARTHRITIS
     Dosage: 50 MG, WEEKLY
     Dates: start: 20110121
  7. DOLQUINE [Concomitant]
     Dosage: UNK
  8. ARAVA [Concomitant]
     Dosage: 10 MG, WEEKLY
  9. METHOTREXATE [Concomitant]
     Dosage: 15 MG, WEEKLY
  10. IBANDRONATE SODIUM [Concomitant]
     Dosage: UNK
  11. PREDNISONE [Suspect]
     Dosage: 15 MG, 1X/DAY
     Dates: start: 20000101
  12. CALCIUM [Concomitant]
     Dosage: UNK
  13. ACFOL [Concomitant]
     Dosage: 5 MG, WEEKLY

REACTIONS (1)
  - OSTEONECROSIS [None]
